FAERS Safety Report 9349549 (Version 1)
Quarter: 2013Q2

REPORT INFORMATION
  Report Type: Spontaneous
  Country: FR (occurrence: FR)
  Receive Date: 20130614
  Receipt Date: 20130614
  Transmission Date: 20140414
  Serious: Yes (Hospitalization)
  Sender: FDA-Public Use
  Company Number: FR-GLAXOSMITHKLINE-B0897691A

PATIENT
  Age: 66 Year
  Sex: Male

DRUGS (10)
  1. AUGMENTIN IV [Suspect]
     Indication: PRODUCT USED FOR UNKNOWN INDICATION
     Dosage: 2G THREE TIMES PER DAY
     Route: 042
     Dates: start: 20130214, end: 20130221
  2. DEROXAT [Suspect]
     Indication: PRODUCT USED FOR UNKNOWN INDICATION
     Route: 048
     Dates: end: 20130214
  3. MOPRAL [Suspect]
     Indication: PRODUCT USED FOR UNKNOWN INDICATION
     Route: 048
     Dates: end: 20130214
  4. PARACETAMOL [Suspect]
     Indication: PRODUCT USED FOR UNKNOWN INDICATION
     Dosage: 1G FOUR TIMES PER DAY
     Route: 042
     Dates: start: 20130214, end: 20130221
  5. METFORMIN [Suspect]
     Indication: PRODUCT USED FOR UNKNOWN INDICATION
     Route: 048
     Dates: end: 20130214
  6. AMIODARONE [Suspect]
     Indication: PRODUCT USED FOR UNKNOWN INDICATION
     Dosage: 200MG PER DAY
     Route: 048
  7. MICARDIS [Suspect]
     Indication: PRODUCT USED FOR UNKNOWN INDICATION
     Route: 065
     Dates: end: 20130214
  8. KALEORID [Suspect]
     Indication: PRODUCT USED FOR UNKNOWN INDICATION
     Route: 048
     Dates: end: 20130214
  9. VENOFER [Suspect]
     Indication: PRODUCT USED FOR UNKNOWN INDICATION
     Route: 042
     Dates: end: 20130214
  10. LOVENOX [Suspect]
     Indication: PRODUCT USED FOR UNKNOWN INDICATION
     Dosage: .4UL PER DAY
     Route: 058
     Dates: start: 20130214, end: 20130221

REACTIONS (2)
  - Lymphopenia [Recovered/Resolved]
  - Leukopenia [Recovered/Resolved]
